FAERS Safety Report 6221413-1 (Version None)
Quarter: 2009Q2

REPORT INFORMATION
  Report Type: 
  Country: None (occurrence: None)
  Receive Date: 20090608
  Receipt Date: 20090604
  Transmission Date: 20091009
  Serious: Yes (Death, Hospitalization)
  Sender: FDA-Public Use
  Company Number: 2008SP025273

PATIENT
  Age: 40 Year
  Sex: Male
  Weight: 54 kg

DRUGS (7)
  1. TEMODAL [Suspect]
     Indication: ANAPLASTIC ASTROCYTOMA
     Dosage: 120 MG;QD;PO; 220 MG;QD;PO; 300 MG;QD;PO
     Route: 048
     Dates: start: 20061227, end: 20070207
  2. TEMODAL [Suspect]
     Indication: ANAPLASTIC ASTROCYTOMA
     Dosage: 120 MG;QD;PO; 220 MG;QD;PO; 300 MG;QD;PO
     Route: 048
     Dates: start: 20070305, end: 20070309
  3. TEMODAL [Suspect]
     Indication: ANAPLASTIC ASTROCYTOMA
     Dosage: 120 MG;QD;PO; 220 MG;QD;PO; 300 MG;QD;PO
     Route: 048
     Dates: start: 20070402, end: 20081019
  4. PREDONINE [Concomitant]
  5. DEPAKENE [Concomitant]
  6. MAGNESIUM OXIDE [Concomitant]
  7. GASTER D [Concomitant]

REACTIONS (4)
  - ANOREXIA [None]
  - BRAIN NEOPLASM [None]
  - DISEASE PROGRESSION [None]
  - PNEUMONIA BACTERIAL [None]
